FAERS Safety Report 8247303-0 (Version None)
Quarter: 2012Q1

REPORT INFORMATION
  Report Type: 
  Country: None (occurrence: None)
  Receive Date: 20120329
  Receipt Date: 20120329
  Transmission Date: 20120608
  Serious: No
  Sender: FDA-Public Use
  Company Number: None

PATIENT
  Age: 42 Year
  Sex: Female

DRUGS (2)
  1. TOPAMAX [Suspect]
     Dates: start: 20090707, end: 20091027
  2. INH [Suspect]
     Dates: start: 20090717, end: 20091027

REACTIONS (7)
  - HEPATIC CIRRHOSIS [None]
  - CHOLESTASIS [None]
  - HEPATIC FIBROSIS [None]
  - LIVER TRANSPLANT [None]
  - HEPATIC NECROSIS [None]
  - RENAL FAILURE [None]
  - ENCEPHALOPATHY [None]
